FAERS Safety Report 6275331-3 (Version None)
Quarter: 2009Q3

REPORT INFORMATION
  Report Type: 
  Country: None (occurrence: None)
  Receive Date: 20090721
  Receipt Date: 20090710
  Transmission Date: 20100115
  Serious: Yes (Hospitalization)
  Sender: FDA-Public Use
  Company Number: B0583218A

PATIENT
  Sex: Male

DRUGS (7)
  1. PAXIL [Suspect]
     Indication: DEPRESSION
     Route: 048
     Dates: start: 20081213, end: 20081226
  2. PAXIL [Suspect]
     Route: 048
     Dates: start: 20081227
  3. DEPAS [Concomitant]
     Indication: INSOMNIA
     Dosage: 1MG PER DAY
     Route: 048
     Dates: start: 20090622
  4. ROHYPNOL [Concomitant]
     Indication: INSOMNIA
     Dosage: 1MG PER DAY
     Route: 048
     Dates: start: 20081115
  5. DOGMATYL [Concomitant]
     Indication: DEPRESSION
     Dosage: 150MG PER DAY
     Route: 048
     Dates: start: 20080728, end: 20081125
  6. ZOLOFT [Concomitant]
     Indication: DEPRESSION
     Route: 048
     Dates: start: 20081020, end: 20081213
  7. MAGLAX [Concomitant]
     Indication: CONSTIPATION
     Dosage: 660MG PER DAY
     Route: 048
     Dates: start: 20081227

REACTIONS (4)
  - ANGER [None]
  - EUPHORIC MOOD [None]
  - LOGORRHOEA [None]
  - MANIA [None]
